FAERS Safety Report 7204016-1 (Version None)
Quarter: 2010Q4

REPORT INFORMATION
  Report Type: 
  Country: None (occurrence: None)
  Receive Date: 20101230
  Receipt Date: 20101216
  Transmission Date: 20110411
  Serious: Yes (Hospitalization, Other)
  Sender: FDA-Public Use
  Company Number: PHHY2010PK85705

PATIENT
  Age: 38 Year
  Sex: Male

DRUGS (1)
  1. METRONIDAZOLE [Suspect]
     Dosage: 1200 ? 1600 MG/DAY

REACTIONS (11)
  - ATAXIA [None]
  - BALANCE DISORDER [None]
  - COORDINATION ABNORMAL [None]
  - DIPLOPIA [None]
  - DYSARTHRIA [None]
  - ENCEPHALOPATHY [None]
  - MENTAL DISORDER [None]
  - MYOCLONUS [None]
  - NYSTAGMUS [None]
  - POSTICTAL STATE [None]
  - REFLEXES ABNORMAL [None]
